FAERS Safety Report 20303505 (Version 15)
Quarter: 2022Q3

REPORT INFORMATION
  Report Type: Report from Study
  Country: JP (occurrence: JP)
  Receive Date: 20220106
  Receipt Date: 20220906
  Transmission Date: 20221026
  Serious: Yes (Life-Threatening, Hospitalization, Other)
  Sender: FDA-Public Use
  Company Number: JP-NOVARTISPH-NVSJ2021JP021425

PATIENT
  Age: 1 Year
  Sex: Female
  Weight: 8.1 kg

DRUGS (13)
  1. ZOLGENSMA [Suspect]
     Active Substance: ONASEMNOGENE ABEPARVOVEC-XIOI
     Indication: Spinal muscular atrophy
     Dosage: 1.1X10^14 VG/KG
     Route: 041
     Dates: start: 20211222, end: 20211222
  2. PREDONINE [Concomitant]
     Active Substance: PREDNISOLONE
     Indication: Product used for unknown indication
     Dosage: 1.09 MG/KG, QD
     Route: 048
     Dates: start: 20211221, end: 20211227
  3. PREDONINE [Concomitant]
     Active Substance: PREDNISOLONE
     Dosage: 2.0 MG/KG, QD
     Route: 041
     Dates: start: 20211228, end: 20220113
  4. PREDONINE [Concomitant]
     Active Substance: PREDNISOLONE
     Dosage: 1.5 MG/KG, QD
     Route: 048
     Dates: start: 20220114, end: 20220127
  5. PREDONINE [Concomitant]
     Active Substance: PREDNISOLONE
     Dosage: 1.25 MG/KG, QD
     Route: 048
     Dates: start: 20220128, end: 20220210
  6. PREDONINE [Concomitant]
     Active Substance: PREDNISOLONE
     Dosage: 1 MG/KG, QD
     Route: 048
     Dates: start: 20220211, end: 20220224
  7. PREDONINE [Concomitant]
     Active Substance: PREDNISOLONE
     Dosage: 0.87 MG/KG, QD
     Route: 048
     Dates: start: 20220225, end: 20220303
  8. PREDONINE [Concomitant]
     Active Substance: PREDNISOLONE
     Dosage: 0.75 MG/KG, QD
     Route: 048
     Dates: start: 20220304, end: 20220310
  9. PREDONINE [Concomitant]
     Active Substance: PREDNISOLONE
     Dosage: 0.625 MG
     Route: 048
     Dates: start: 20220311, end: 20220317
  10. PREDONINE [Concomitant]
     Active Substance: PREDNISOLONE
     Dosage: 0.5 MG/KG
     Route: 048
     Dates: start: 20220318, end: 20220324
  11. PREDONINE [Concomitant]
     Active Substance: PREDNISOLONE
     Dosage: 0.375 MG/KG
     Route: 048
     Dates: start: 20220325, end: 20220331
  12. PREDONINE [Concomitant]
     Active Substance: PREDNISOLONE
     Dosage: 0.25 MG/KG
     Route: 048
     Dates: start: 20220401, end: 20220407
  13. PREDONINE [Concomitant]
     Active Substance: PREDNISOLONE
     Dosage: 0.125 MG/KG
     Route: 048
     Dates: start: 20220408, end: 20220414

REACTIONS (34)
  - Thrombotic microangiopathy [Recovered/Resolved]
  - Blood lactate dehydrogenase increased [Recovered/Resolved]
  - Platelet count decreased [Recovered/Resolved]
  - Urine output decreased [Recovered/Resolved]
  - Complement factor decreased [Recovered/Resolved]
  - Blood creatinine increased [Recovered/Resolved]
  - Pyrexia [Recovered/Resolved]
  - Pyrexia [Recovered/Resolved]
  - Decreased appetite [Recovered/Resolved]
  - Renal impairment [Recovering/Resolving]
  - Haematuria [Recovered/Resolved]
  - Proteinuria [Recovered/Resolved with Sequelae]
  - Hypertension [Recovered/Resolved]
  - Full blood count decreased [Unknown]
  - Ascites [Unknown]
  - Abdominal distension [Recovering/Resolving]
  - Faecaloma [Unknown]
  - Generalised oedema [Unknown]
  - Respiratory disorder [Recovering/Resolving]
  - Aspartate aminotransferase increased [Recovered/Resolved]
  - Disseminated intravascular coagulation [Recovered/Resolved]
  - Medical device site haemorrhage [Recovered/Resolved]
  - Anaemia [Recovered/Resolved]
  - Hyperkalaemia [Recovered/Resolved]
  - Serratia infection [Recovered/Resolved]
  - C-reactive protein increased [Unknown]
  - Pneumonia aspiration [Recovered/Resolved]
  - Cerebral atrophy [Recovered/Resolved]
  - Alanine aminotransferase increased [Recovered/Resolved]
  - Troponin I increased [Recovered/Resolved]
  - White blood cell count increased [Recovered/Resolved]
  - Protein urine [Not Recovered/Not Resolved]
  - Drug withdrawal syndrome [Recovered/Resolved]
  - Tremor [Unknown]

NARRATIVE: CASE EVENT DATE: 20211223
